FAERS Safety Report 22160470 (Version 3)
Quarter: 2023Q2

REPORT INFORMATION
  Report Type: Spontaneous
  Country: US (occurrence: US)
  Receive Date: 20230331
  Receipt Date: 20230606
  Transmission Date: 20230721
  Serious: No
  Sender: FDA-Public Use
  Company Number: US-UNITED THERAPEUTICS-UNT-2023-004435

PATIENT
  Age: 28 Year
  Sex: Female
  Weight: 54.422 kg

DRUGS (9)
  1. REMODULIN [Suspect]
     Active Substance: TREPROSTINIL
     Indication: Pulmonary arterial hypertension
     Dosage: 0.026 ?G/KG (PRE-FILED WITH 1.7 ML/CASSETTE; AT A PUMP RATE 17MCL), CONTINUING
     Route: 058
     Dates: start: 20230209
  2. REMODULIN [Suspect]
     Active Substance: TREPROSTINIL
     Dosage: 0.020 ?G/KG (SELF-FILLED WITH 2.5 ML/CASSETTE; AT A PUMP RATE OF 26 MCL/HOUR), CONTINUING
     Route: 058
     Dates: start: 202302
  3. REMODULIN [Suspect]
     Active Substance: TREPROSTINIL
     Dosage: UNK (SELF-FILLED WITH 2.4 ML/CASSETTE; AT A PUMP RATE OF 26 MCL/HOUR), CONTINUING
     Route: 058
     Dates: start: 202302
  4. REMODULIN [Suspect]
     Active Substance: TREPROSTINIL
     Dosage: UNK (SELF-FILLED WITH 2.5 ML/CASSETTE; AT A PUMP RATE OF 39 MCL/HOUR), CONTINUING
     Route: 058
  5. REMODULIN [Suspect]
     Active Substance: TREPROSTINIL
     Dosage: 0.032 ?G/KG (SELF FILL CASSETTE WITH 2.5 ML, AT A PUMP RATE OF 42 MCL/HOUR), CONTINUING
     Route: 058
  6. REMODULIN [Suspect]
     Active Substance: TREPROSTINIL
     Indication: Pulmonary arterial hypertension
     Dosage: 0.044 ?G/KG (SELF-FILL CASSETTE WITH 2.6 ML PER CASSETTE, AT A PUMP RATE OF 29 MCL/HOUR), CONTINUING
     Route: 058
  7. REMODULIN [Suspect]
     Active Substance: TREPROSTINIL
     Dosage: UNK, CONTINUING
     Route: 058
  8. LETAIRIS [Suspect]
     Active Substance: AMBRISENTAN
     Indication: Pulmonary arterial hypertension
     Dosage: 10 MG, QD
     Route: 065
     Dates: start: 20230215
  9. TADALAFIL [Concomitant]
     Active Substance: TADALAFIL
     Indication: Product used for unknown indication
     Dosage: UNK
     Route: 065

REACTIONS (9)
  - Infusion site pain [Unknown]
  - Headache [Unknown]
  - Diarrhoea [Recovered/Resolved]
  - Dizziness [Recovering/Resolving]
  - Swelling face [Unknown]
  - Chest discomfort [Unknown]
  - Infusion site erythema [Unknown]
  - Infusion site infection [Unknown]
  - Device wireless communication issue [Unknown]

NARRATIVE: CASE EVENT DATE: 20230201
